FAERS Safety Report 25276479 (Version 3)
Quarter: 2025Q2

REPORT INFORMATION
  Report Type: Report from Study
  Country: CA (occurrence: CA)
  Receive Date: 20250507
  Receipt Date: 20250617
  Transmission Date: 20250716
  Serious: Yes (Other)
  Sender: TAKEDA
  Company Number: CA-TAKEDA-2025TUS026130

PATIENT
  Sex: Female

DRUGS (10)
  1. VEDOLIZUMAB [Suspect]
     Active Substance: VEDOLIZUMAB
     Indication: Crohn^s disease
  2. VEDOLIZUMAB [Suspect]
     Active Substance: VEDOLIZUMAB
  3. CANDESARTAN [Concomitant]
     Active Substance: CANDESARTAN
  4. SPIRONOLACTONE [Concomitant]
     Active Substance: SPIRONOLACTONE
  5. ESTRADIOL [Concomitant]
     Active Substance: ESTRADIOL
  6. PROMETRIUM [Concomitant]
     Active Substance: PROGESTERONE
  7. FLUVOXAMINE [Concomitant]
     Active Substance: FLUVOXAMINE
  8. ZOPICLONE [Concomitant]
     Active Substance: ZOPICLONE
  9. SUMATRIPTAN [Concomitant]
     Active Substance: SUMATRIPTAN
  10. NURTEC ODT [Concomitant]
     Active Substance: RIMEGEPANT SULFATE

REACTIONS (13)
  - Intestinal stenosis [Unknown]
  - Crohn^s disease [Unknown]
  - Drug intolerance [Not Recovered/Not Resolved]
  - Influenza like illness [Recovered/Resolved]
  - Diarrhoea [Unknown]
  - Head discomfort [Recovering/Resolving]
  - Malaise [Unknown]
  - Abdominal pain [Unknown]
  - Dizziness [Recovering/Resolving]
  - Constipation [Unknown]
  - Nausea [Unknown]
  - Fatigue [Recovered/Resolved]
  - Pyrexia [Unknown]
